FAERS Safety Report 9268082 (Version 1)
Quarter: 2013Q2

REPORT INFORMATION
  Report Type: Spontaneous
  Country: US (occurrence: US)
  Receive Date: 20130502
  Receipt Date: 20130502
  Transmission Date: 20140414
  Serious: Yes (Other)
  Sender: FDA-Public Use
  Company Number: US-ALEXION-A201201403

PATIENT
  Sex: Male
  Weight: 63.3 kg

DRUGS (7)
  1. SOLIRIS 300MG [Suspect]
     Indication: HAEMOLYTIC URAEMIC SYNDROME
     Dosage: 900 MG, UNK
     Route: 042
     Dates: start: 20120329
  2. SOLIRIS 300MG [Suspect]
     Dosage: 1200 MG, UNK
     Route: 042
     Dates: start: 20120511
  3. ANTIHYPERTENSIVES [Concomitant]
     Dosage: UNK
  4. NEXIUM [Concomitant]
     Dosage: 40 MG, QD
     Route: 048
  5. CARVEDILOL [Concomitant]
     Indication: HYPERTENSION
     Dosage: 12.5 MG, BID PRN WITH BP CHECK
     Route: 048
  6. LISINOPRIL [Concomitant]
     Dosage: UNK
     Route: 048
  7. ZOFRAN [Concomitant]
     Dosage: UNK
     Route: 048

REACTIONS (3)
  - Hypotension [Not Recovered/Not Resolved]
  - Vomiting [Not Recovered/Not Resolved]
  - Back pain [Not Recovered/Not Resolved]
